FAERS Safety Report 5322844-4 (Version None)
Quarter: 2007Q2

REPORT INFORMATION
  Report Type: 
  Country: None (occurrence: None)
  Receive Date: 20070511
  Receipt Date: 20070430
  Transmission Date: 20071010
  Serious: Yes (Other)
  Sender: FDA-Public Use
  Company Number: US-PFIZER INC-2007035429

PATIENT
  Sex: Female
  Weight: 64.545 kg

DRUGS (10)
  1. CHANTIX [Suspect]
     Indication: SMOKING CESSATION THERAPY
     Dates: start: 20070414, end: 20070428
  2. IMURAN [Suspect]
     Indication: AUTOIMMUNE DISORDER
  3. ASPIRIN [Concomitant]
  4. MELOXICAM [Concomitant]
  5. PREVACID [Concomitant]
  6. ATENOLOL [Concomitant]
  7. CARISOPRODOL [Concomitant]
  8. TIZANIDINE HCL [Concomitant]
  9. BACLOFEN [Concomitant]
  10. PREDNISONE TAB [Concomitant]

REACTIONS (6)
  - BLOOD POTASSIUM DECREASED [None]
  - DEHYDRATION [None]
  - NAUSEA [None]
  - ORAL INTAKE REDUCED [None]
  - THERAPY CESSATION [None]
  - VOMITING [None]
